FAERS Safety Report 13944667 (Version 1)
Quarter: 2017Q3

REPORT INFORMATION
  Report Type: Spontaneous
  Country: US (occurrence: US)
  Receive Date: 20170907
  Receipt Date: 20170907
  Transmission Date: 20171128
  Serious: Yes (Other)
  Sender: FDA-Public Use
  Company Number: US-ROCHE-1368525

PATIENT
  Sex: Female

DRUGS (2)
  1. RITUXAN [Suspect]
     Active Substance: RITUXIMAB
     Indication: CHRONIC LYMPHOCYTIC LEUKAEMIA
     Dosage: 5 DOSES
     Route: 042
  2. RITUXAN [Suspect]
     Active Substance: RITUXIMAB
     Dosage: 4 DOSES
     Route: 042
     Dates: start: 201312, end: 20140122

REACTIONS (7)
  - Viral infection [Unknown]
  - Rash [Not Recovered/Not Resolved]
  - Rash pruritic [Unknown]
  - Pruritus [Not Recovered/Not Resolved]
  - Haemolytic anaemia [Unknown]
  - Tongue pruritus [Unknown]
  - Skin exfoliation [Not Recovered/Not Resolved]
